FAERS Safety Report 25310861 (Version 1)
Quarter: 2025Q2

REPORT INFORMATION
  Report Type: Spontaneous
  Country: GR (occurrence: GR)
  Receive Date: 20250514
  Receipt Date: 20250514
  Transmission Date: 20250717
  Serious: Yes (Hospitalization)
  Sender: MERCK SHARP & DOHME LLC
  Company Number: GR-009507513-2284008

PATIENT
  Age: 70 Year
  Sex: Male

DRUGS (2)
  1. KEYTRUDA [Suspect]
     Active Substance: PEMBROLIZUMAB
     Indication: Non-small cell lung cancer
     Dosage: 6-7 CYCLES
     Route: 065
  2. CORTISONE [Suspect]
     Active Substance: CORTISONE
     Indication: Capillary leak syndrome
     Route: 065

REACTIONS (2)
  - Capillary leak syndrome [Unknown]
  - Therapy non-responder [Unknown]
